FAERS Safety Report 8300505-7 (Version None)
Quarter: 2012Q2

REPORT INFORMATION
  Report Type: 
  Country: None (occurrence: None)
  Receive Date: 20120420
  Receipt Date: 20120411
  Transmission Date: 20120825
  Serious: Yes (Hospitalization)
  Sender: FDA-Public Use
  Company Number: US-BIOGENIDEC-2008BI008086

PATIENT
  Age: 42 Year
  Sex: Female
  Weight: 138 kg

DRUGS (2)
  1. TYSABRI [Suspect]
     Route: 042
     Dates: start: 20070222, end: 20080320
  2. TYSABRI [Suspect]
     Indication: MULTIPLE SCLEROSIS
     Route: 042
     Dates: start: 20050204

REACTIONS (9)
  - IMPAIRED HEALING [None]
  - LOCALISED INFECTION [None]
  - HYPOAESTHESIA [None]
  - SKIN DISCOLOURATION [None]
  - WOUND INFECTION [None]
  - LEG AMPUTATION [None]
  - ANAEMIA [None]
  - MULTIPLE SCLEROSIS RELAPSE [None]
  - DEEP VEIN THROMBOSIS [None]
